FAERS Safety Report 10577311 (Version 1)
Quarter: 2014Q4

REPORT INFORMATION
  Report Type: Spontaneous
  Country: US (occurrence: US)
  Receive Date: 20141111
  Receipt Date: 20141111
  Transmission Date: 20150529
  Serious: No
  Sender: FDA-Public Use
  Company Number: US-BAYER-2014-167074

PATIENT
  Sex: Female

DRUGS (2)
  1. MIDOL [Suspect]
     Active Substance: IBUPROFEN
     Dosage: UNK DF, UNK
  2. MENSTRIDOL [Suspect]
     Active Substance: NAPROXEN SODIUM
     Dosage: UNK DF, UNK

REACTIONS (2)
  - Therapeutic response unexpected [Unknown]
  - Drug ineffective [Unknown]
